FAERS Safety Report 9780483 (Version 2)
Quarter: 2014Q1

REPORT INFORMATION
  Report Type: Spontaneous
  Country: US (occurrence: US)
  Receive Date: 20131224
  Receipt Date: 20140210
  Transmission Date: 20141002
  Serious: Yes (Hospitalization, Other)
  Sender: FDA-Public Use
  Company Number: US-BIOGENIDEC-2013BI121881

PATIENT
  Age: 73 Year
  Sex: Female

DRUGS (14)
  1. TECFIDERA [Suspect]
     Indication: MULTIPLE SCLEROSIS
     Dates: start: 201310, end: 201312
  2. COPAXONE [Concomitant]
     Indication: MULTIPLE SCLEROSIS
     Dates: end: 201310
  3. COPAXONE [Concomitant]
     Indication: MULTIPLE SCLEROSIS
     Dates: start: 201312
  4. ADVAIR [Concomitant]
  5. ATIVAN [Concomitant]
  6. CALCIUM [Concomitant]
  7. CELEBREX [Concomitant]
  8. CLONIDINE [Concomitant]
  9. CRESTOR [Concomitant]
  10. CYMBALTA [Concomitant]
  11. LEVOXYL [Concomitant]
  12. LISINOPRIL [Concomitant]
  13. LYRICA [Concomitant]
  14. VITAMIN D3 [Concomitant]

REACTIONS (6)
  - Renal failure [Recovered/Resolved]
  - Nausea [Unknown]
  - Vomiting [Unknown]
  - Dehydration [Unknown]
  - Hypotension [Unknown]
  - Diarrhoea [Unknown]
